FAERS Safety Report 25145532 (Version 1)
Quarter: 2025Q2

REPORT INFORMATION
  Report Type: Spontaneous
  Country: FR (occurrence: FR)
  Receive Date: 20250401
  Receipt Date: 20250401
  Transmission Date: 20250716
  Serious: Yes (Other)
  Sender: ALNYLAM PHARMACEUTICALS
  Company Number: FR-ALNYLAM PHARMACEUTICALS, INC.-ALN-2025-002002

PATIENT

DRUGS (2)
  1. OXLUMO [Suspect]
     Active Substance: LUMASIRAN
     Indication: Primary hyperoxaluria
     Dosage: 3 MILLIGRAM/KILOGRAM, MONTHLY (LOADING PHASE)
     Route: 065
  2. OXLUMO [Suspect]
     Active Substance: LUMASIRAN
     Dosage: 3 MILLIGRAM/KILOGRAM, Q3M
     Route: 065

REACTIONS (4)
  - Kidney transplant rejection [Unknown]
  - Intentional product misuse [Unknown]
  - Laboratory test abnormal [Unknown]
  - Glomerular filtration rate abnormal [Unknown]
